FAERS Safety Report 11880660 (Version 1)
Quarter: 2015Q4

REPORT INFORMATION
  Report Type: Spontaneous
  Country: IT (occurrence: IT)
  Receive Date: 20151230
  Receipt Date: 20151230
  Transmission Date: 20160305
  Serious: Yes (Hospitalization, Other)
  Sender: FDA-Public Use
  Company Number: IT-GILEAD-2015-0189921

PATIENT
  Age: 77 Year
  Sex: Male

DRUGS (2)
  1. SOVALDI [Suspect]
     Active Substance: SOFOSBUVIR
     Indication: HEPATITIS C
     Dosage: 1 MG, QD
     Route: 048
     Dates: start: 20151123
  2. MODERIBA [Suspect]
     Active Substance: RIBAVIRIN
     Indication: HEPATITIS C
     Dosage: 800 MG, QD
     Route: 048
     Dates: start: 20151123

REACTIONS (3)
  - Renal failure [Unknown]
  - Periorbital oedema [Unknown]
  - Anaemia [Unknown]

NARRATIVE: CASE EVENT DATE: 20151218
